FAERS Safety Report 4851103-9 (Version None)
Quarter: 2005Q4

REPORT INFORMATION
  Report Type: 
  Country: None (occurrence: None)
  Receive Date: 20051208
  Receipt Date: 20051122
  Transmission Date: 20060501
  Serious: Yes (Hospitalization, Disabling)
  Sender: FDA-Public Use
  Company Number: CIP05002805

PATIENT
  Age: 1 Day
  Sex: Female

DRUGS (10)
  1. FURADANTIN [Suspect]
     Dosage: TRANSPLACENTAL
     Route: 064
     Dates: start: 19941021
  2. OROKEN (CEFIXIME) [Suspect]
     Dosage: TRANSPLACENTAL
     Route: 064
     Dates: start: 19941114, end: 19941126
  3. MOTILIUM [Suspect]
     Dosage: TRANSPLACENTAL
     Route: 064
  4. PRIMPERAN TAB [Suspect]
     Dosage: TRANSPLACENTAL
     Route: 064
  5. VOGALENE (METOPRIMAZINE) [Suspect]
     Dosage: TRANSPLACENTAL
     Route: 064
  6. IMPORTAL (LACTITOL) [Suspect]
     Dosage: TRANSPLACENTAL
     Route: 064
  7. VANCOMYCIN [Suspect]
     Dosage: TRANSPLACENTAL
     Route: 064
     Dates: end: 19941217
  8. POTASSIUM CHLORIDE [Suspect]
     Dosage: TRANSPLACENTAL
     Route: 064
     Dates: end: 19941217
  9. PARAPYSLLIUM (PLANTAGO AFRA, PARAFFIN, LIQUID) [Concomitant]
  10. ULTRA-LEVURE (SACCHAROMYCES BOULARDII) [Concomitant]

REACTIONS (14)
  - BRAIN OEDEMA [None]
  - CEPHALHAEMATOMA [None]
  - CEREBRAL HAEMORRHAGE NEONATAL [None]
  - CONVULSION NEONATAL [None]
  - DRUG EXPOSURE DURING PREGNANCY [None]
  - FORCEPS DELIVERY [None]
  - GAIT DISTURBANCE [None]
  - HEMIPARESIS [None]
  - JAUNDICE NEONATAL [None]
  - MUSCULOSKELETAL DISORDER [None]
  - NEONATAL DISORDER [None]
  - OEDEMA NEONATAL [None]
  - SIMPLE PARTIAL SEIZURES [None]
  - TALIPES [None]
